FAERS Safety Report 4495051-5 (Version None)
Quarter: 2004Q4

REPORT INFORMATION
  Report Type: 
  Country: None (occurrence: None)
  Receive Date: 20041108
  Receipt Date: 20030725
  Transmission Date: 20050328
  Serious: Yes (Life-Threatening, Hospitalization, Other)
  Sender: FDA-Public Use
  Company Number: CZ-ABBOTT-03P-217-0226835-00

PATIENT
  Sex: Female
  Weight: 63 kg

DRUGS (10)
  1. MERIDIA [Suspect]
     Indication: OVERWEIGHT
     Dosage: 24 TO 28 TABLETS IN 2 1/2 MONTHS
     Route: 048
     Dates: start: 20030401, end: 20030618
  2. MERIDIA [Suspect]
     Indication: BODY MASS INDEX INCREASED
     Dates: start: 20030401, end: 20030425
  3. MERIDIA [Suspect]
     Indication: PROPHYLAXIS
  4. MERIDIA [Suspect]
     Indication: WEIGHT CONTROL
  5. LEVOTHYROXINE SODIUM [Concomitant]
     Indication: HYPOTHYROIDISM
     Route: 048
     Dates: start: 19860101
  6. GLYCEOL [Concomitant]
     Indication: VARICOSE VEIN
     Route: 048
     Dates: start: 20030101
  7. ROFECOXIB [Concomitant]
     Indication: MUSCULOSKELETAL PAIN
     Route: 048
     Dates: start: 20030501
  8. INDOMETHACIN [Concomitant]
     Indication: MUSCULOSKELETAL PAIN
     Dates: start: 20030401, end: 20030401
  9. TIBOLONE [Concomitant]
     Indication: HORMONE LEVEL ABNORMAL
     Route: 048
     Dates: start: 19980101, end: 20030610
  10. CEFUROXIME AXETIL [Concomitant]
     Indication: BRONCHITIS
     Route: 048
     Dates: start: 20030602, end: 20030608

REACTIONS (20)
  - AGGRESSION [None]
  - AMNESIA [None]
  - ATTENTION DEFICIT/HYPERACTIVITY DISORDER [None]
  - COGNITIVE DISORDER [None]
  - CONFUSIONAL STATE [None]
  - DISORIENTATION [None]
  - DISTURBANCE IN ATTENTION [None]
  - FATIGUE [None]
  - GLOBAL AMNESIA [None]
  - HEADACHE [None]
  - PARAESTHESIA [None]
  - PSYCHOMOTOR SKILLS IMPAIRED [None]
  - PYREXIA [None]
  - RETROGRADE AMNESIA [None]
  - SOCIAL AVOIDANT BEHAVIOUR [None]
  - SOMNOLENCE [None]
  - SPINAL OSTEOARTHRITIS [None]
  - TRANSIENT ISCHAEMIC ATTACK [None]
  - VIRAL INFECTION [None]
  - VOMITING [None]
